FAERS Safety Report 9418996 (Version 1)
Quarter: 2013Q3

REPORT INFORMATION
  Report Type: Spontaneous
  Country: US (occurrence: None)
  Receive Date: 20130722
  Receipt Date: 20130722
  Transmission Date: 20140515
  Serious: Yes (Death, Hospitalization, Disabling)
  Sender: FDA-Public Use
  Company Number: None

PATIENT
  Age: 85 Year
  Sex: Female
  Weight: 67.13 kg

DRUGS (2)
  1. ERTAPENEM SODIUM [Suspect]
     Indication: URINARY TRACT INFECTION
     Dosage: IV  ONCE DAILY FOR 14 DAYS  IV RECONSTITUTED SOLUTION, INJECTION
     Route: 042
     Dates: start: 20120624, end: 20120707
  2. ERTAPENEM SODIUM [Suspect]
     Indication: PYELONEPHRITIS
     Dosage: IV  ONCE DAILY FOR 14 DAYS  IV RECONSTITUTED SOLUTION, INJECTION
     Route: 042
     Dates: start: 20120624, end: 20120707

REACTIONS (7)
  - Speech disorder [None]
  - Dysphagia [None]
  - General physical health deterioration [None]
  - Abnormal behaviour [None]
  - Local swelling [None]
  - Bladder disorder [None]
  - Contraindication to medical treatment [None]
